FAERS Safety Report 7157386-7 (Version None)
Quarter: 2010Q4

REPORT INFORMATION
  Report Type: 
  Country: None (occurrence: None)
  Receive Date: 20101130
  Receipt Date: 20101118
  Transmission Date: 20110411
  Serious: Yes (Hospitalization)
  Sender: FDA-Public Use
  Company Number: 2010-2789

PATIENT
  Age: 73 Year
  Sex: Female

DRUGS (7)
  1. APO-GO AMPOULES (APO-GO) (APOMORPHINE HYDROCHLORIDE) (APOMORPHINE HYDR [Suspect]
     Indication: PARKINSON'S DISEASE
     Dosage: SEE IMAGE
     Route: 058
     Dates: start: 20080801
  2. MIFRTAZAPINE (MIRTAZAPINE) [Concomitant]
  3. AZILECT [Concomitant]
  4. LEVOCOMP (SINEMET) [Concomitant]
  5. SINEMET [Concomitant]
  6. SEROQUEL [Concomitant]
  7. CIPRAMIL (CITALOPRAM HYDROBROMIDE) [Concomitant]

REACTIONS (11)
  - ACCIDENTAL OVERDOSE [None]
  - ANXIETY [None]
  - DEPRESSED MOOD [None]
  - DISTURBANCE IN ATTENTION [None]
  - DYSARTHRIA [None]
  - FALL [None]
  - INAPPROPRIATE SCHEDULE OF DRUG ADMINISTRATION [None]
  - INFUSION SITE MASS [None]
  - MEMORY IMPAIRMENT [None]
  - MOBILITY DECREASED [None]
  - POOR QUALITY SLEEP [None]
